FAERS Safety Report 7814993-3 (Version None)
Quarter: 2011Q4

REPORT INFORMATION
  Report Type: 
  Country: None (occurrence: None)
  Receive Date: 20111014
  Receipt Date: 20111010
  Transmission Date: 20120403
  Serious: Yes (Other)
  Sender: FDA-Public Use
  Company Number: US-GLAXOSMITHKLINE-A0948471A

PATIENT
  Age: 59 Year
  Sex: Female

DRUGS (10)
  1. TRIAMTERENE AND HYDROCHLOROTHIAZIDE [Concomitant]
  2. LOSARTAN POTASSIUM [Concomitant]
  3. CENTRUM VITAMIN [Concomitant]
  4. MULTI-VITAMINS [Concomitant]
  5. AMLODIPINE BESYLATE [Concomitant]
  6. ADVAIR DISKUS 100/50 [Suspect]
     Indication: ASTHMA
     Dosage: 1PUFF TWICE PER DAY
     Route: 055
     Dates: start: 20070101, end: 20110701
  7. ASPIRIN [Concomitant]
  8. PREDNISONE [Concomitant]
  9. ANTIBIOTIC [Concomitant]
  10. ALBUTEROL [Concomitant]

REACTIONS (3)
  - INTRAOCULAR PRESSURE INCREASED [None]
  - VISUAL ACUITY REDUCED [None]
  - CATARACT [None]
